FAERS Safety Report 8013495 (Version 5)
Quarter: 2012Q4

REPORT INFORMATION
  Report Type: Report from Study
  Country: US (occurrence: US)
  Receive Date: 20110628
  Receipt Date: 20121004
  Transmission Date: 20130627
  Serious: Yes (Hospitalization)
  Sender: FDA-Public Use
  Company Number: US-JNJFOC-20110608185

PATIENT
  Age: 6 Year
  Sex: Male
  Weight: 20.5 kg

DRUGS (6)
  1. REMICADE [Suspect]
     Indication: COLITIS ULCERATIVE
     Route: 042
     Dates: start: 20100827
  2. REMICADE [Suspect]
     Indication: COLITIS ULCERATIVE
     Route: 042
     Dates: start: 20100630
  3. REMICADE [Suspect]
     Indication: COLITIS ULCERATIVE
     Route: 042
     Dates: start: 20100129
  4. VYVANSE [Concomitant]
  5. PREDNISONE [Concomitant]
  6. FERRLECIT [Concomitant]

REACTIONS (2)
  - Colitis ulcerative [Recovered/Resolved with Sequelae]
  - Ileostomy closure [Recovered/Resolved]
